FAERS Safety Report 6425321-2 (Version None)
Quarter: 2009Q4

REPORT INFORMATION
  Report Type: 
  Country: None (occurrence: None)
  Receive Date: 20091103
  Receipt Date: 20091029
  Transmission Date: 20100525
  Serious: Yes (Congenital Anomaly)
  Sender: FDA-Public Use
  Company Number: A0680354A

PATIENT
  Sex: Male
  Weight: 3.1 kg

DRUGS (8)
  1. PAXIL [Suspect]
     Indication: DEPRESSION
     Dosage: 30MG PER DAY
     Dates: start: 19940101, end: 19960601
  2. VITAMIN TAB [Concomitant]
  3. XANAX [Concomitant]
     Dates: start: 19940101, end: 19950101
  4. TERAZOL 1 [Concomitant]
  5. PHENERGAN HCL [Concomitant]
  6. AMOXICILLIN [Concomitant]
     Dates: start: 19950101
  7. FLEXERIL [Concomitant]
  8. TYLENOL W/ CODEINE NO. 3 [Concomitant]

REACTIONS (4)
  - AORTIC VALVE STENOSIS [None]
  - COARCTATION OF THE AORTA [None]
  - DRUG EXPOSURE DURING PREGNANCY [None]
  - MITRAL VALVE DISEASE [None]
